FAERS Safety Report 5090955-7 (Version None)
Quarter: 2006Q3

REPORT INFORMATION
  Report Type: 
  Country: None (occurrence: None)
  Receive Date: 20060823
  Receipt Date: 20060809
  Transmission Date: 20061208
  Serious: Yes (Other)
  Sender: FDA-Public Use
  Company Number: US-2006-022964

PATIENT
  Age: 24 Year
  Sex: Male

DRUGS (4)
  1. BETASERON [Suspect]
     Indication: RELAPSING-REMITTING MULTIPLE SCLEROSIS
     Dosage: SUBCUTANEOUS
     Route: 058
     Dates: start: 20040526, end: 20060101
  2. BETASERON [Suspect]
     Indication: RELAPSING-REMITTING MULTIPLE SCLEROSIS
     Dosage: SUBCUTANEOUS
     Route: 058
     Dates: start: 20060101
  3. VICODIN [Concomitant]
  4. VALIUM [Concomitant]

REACTIONS (17)
  - ARTHRALGIA [None]
  - BLOOD GLUCOSE FLUCTUATION [None]
  - CHROMATURIA [None]
  - DIABETES MELLITUS [None]
  - FURUNCLE [None]
  - INFLUENZA LIKE ILLNESS [None]
  - LYMPH NODE PAIN [None]
  - LYMPHADENOPATHY [None]
  - NECK PAIN [None]
  - PAIN IN EXTREMITY [None]
  - PREGNANCY OF PARTNER [None]
  - PROTEINURIA [None]
  - RASH [None]
  - RENAL IMPAIRMENT [None]
  - THERAPEUTIC RESPONSE UNEXPECTED [None]
  - URINE ODOUR ABNORMAL [None]
  - WEIGHT DECREASED [None]
